FAERS Safety Report 4859904-8 (Version None)
Quarter: 2005Q4

REPORT INFORMATION
  Report Type: 
  Country: None (occurrence: None)
  Receive Date: 20051219
  Receipt Date: 20051207
  Transmission Date: 20060501
  Serious: Yes (Disabling)
  Sender: FDA-Public Use
  Company Number: 2005AP06338

PATIENT
  Age: 54 Year
  Sex: Female

DRUGS (1)
  1. CRESTOR [Suspect]
     Indication: HYPERCHOLESTEROLAEMIA
     Route: 048
     Dates: start: 20051125

REACTIONS (6)
  - ABDOMINAL PAIN UPPER [None]
  - BLINDNESS [None]
  - BLOOD PRESSURE DIASTOLIC INCREASED [None]
  - GLYCOSYLATED HAEMOGLOBIN INCREASED [None]
  - RETINAL HAEMORRHAGE [None]
  - WEIGHT INCREASED [None]
